FAERS Safety Report 5263849-1 (Version None)
Quarter: 2007Q1

REPORT INFORMATION
  Report Type: 
  Country: None (occurrence: None)
  Receive Date: 20061213
  Receipt Date: 20030828
  Transmission Date: 20070707
  Serious: Yes (Other)
  Sender: FDA-Public Use
  Company Number: 2003UW10974

PATIENT
  Age: 55 Year
  Sex: Female
  Weight: 54.4316 kg

DRUGS (4)
  1. IRESSA [Suspect]
     Indication: LARGE CELL CARCINOMA OF THE RESPIRATORY TRACT STAGE UNSPECIFIED
     Dosage: 250 MG DAILY PO
     Route: 048
     Dates: start: 20030801
  2. FLEXERIL [Concomitant]
  3. PERCOCET [Concomitant]
  4. PENICILLIN [Concomitant]

REACTIONS (4)
  - COUGH [None]
  - EATING DISORDER SYMPTOM [None]
  - GINGIVAL DISORDER [None]
  - OROPHARYNGEAL SWELLING [None]
